FAERS Safety Report 12584027 (Version 2)
Quarter: 2019Q2

REPORT INFORMATION
  Report Type: Spontaneous
  Country: GR (occurrence: GR)
  Receive Date: 20160722
  Receipt Date: 20190603
  Transmission Date: 20190711
  Serious: Yes (Hospitalization, Other)
  Sender: FDA-Public Use
  Company Number: GR-MYLANLABS-2016M1029487

PATIENT
  Age: 70 Year
  Sex: Male

DRUGS (4)
  1. ESOMEPRAZOLE. [Suspect]
     Active Substance: ESOMEPRAZOLE MAGNESIUM
     Indication: GASTROOESOPHAGEAL REFLUX DISEASE
     Dosage: 40 MILLIGRAM, QD
     Route: 048
  2. SALOSPIR [Concomitant]
     Active Substance: ASPIRIN
     Indication: PERIPHERAL ARTERY ANEURYSM
     Dosage: 100 MG, QD
  3. PERINDOPRIL [Concomitant]
     Active Substance: PERINDOPRIL
     Indication: HYPERTENSION
     Dosage: 5 MG, QD
     Route: 048
  4. NEBIVOLOL. [Concomitant]
     Active Substance: NEBIVOLOL
     Indication: HYPERTENSION
     Dosage: 5 MG, QD

REACTIONS (10)
  - Hypomagnesaemia [Recovered/Resolved]
  - Hypocalcaemia [Unknown]
  - Product use issue [Unknown]
  - Gait disturbance [Unknown]
  - Off label use [Unknown]
  - Overdose [Unknown]
  - Dizziness [Unknown]
  - Hypoparathyroidism [Unknown]
  - Hypophosphataemia [Unknown]
  - Hallucination [Recovered/Resolved]
